FAERS Safety Report 14784087 (Version 1)
Quarter: 2018Q2

REPORT INFORMATION
  Report Type: Spontaneous
  Country: PE (occurrence: PE)
  Receive Date: 20180420
  Receipt Date: 20180420
  Transmission Date: 20180711
  Serious: Yes (Death, Other)
  Sender: FDA-Public Use
  Company Number: PE-GLAXOSMITHKLINE-PE2018GSK068000

PATIENT
  Sex: Female

DRUGS (2)
  1. IPRATROPIUM BROMIDE. [Concomitant]
     Active Substance: IPRATROPIUM BROMIDE
     Indication: PRODUCT USED FOR UNKNOWN INDICATION
     Dosage: UNK
  2. SERETIDE [Suspect]
     Active Substance: FLUTICASONE PROPIONATE\SALMETEROL XINAFOATE
     Indication: PULMONARY FIBROSIS
     Dosage: 2 PUFF(S), TID
     Route: 055
     Dates: start: 20140306, end: 201707

REACTIONS (3)
  - Drug ineffective [Unknown]
  - Pulmonary fibrosis [Fatal]
  - Condition aggravated [Fatal]
